FAERS Safety Report 21668968 (Version 1)
Quarter: 2022Q4

REPORT INFORMATION
  Report Type: Spontaneous
  Country: US (occurrence: US)
  Receive Date: 20221201
  Receipt Date: 20221201
  Transmission Date: 20230112
  Serious: Yes (Hospitalization)
  Sender: FDA-Public Use
  Company Number: US-BAYER-2022P023295

PATIENT
  Age: 67 Year
  Sex: Female
  Weight: 84.5 kg

DRUGS (5)
  1. ADEMPAS [Suspect]
     Active Substance: RIOCIGUAT
  2. SELEXIPAG [Suspect]
     Active Substance: SELEXIPAG
     Indication: Pulmonary hypertension
     Dosage: 200 ?G, BID
     Route: 048
  3. SELEXIPAG [Suspect]
     Active Substance: SELEXIPAG
     Indication: Pulmonary hypertension
     Dosage: 400 ?G, BID
     Route: 048
  4. XARELTO [Concomitant]
     Active Substance: RIVAROXABAN
  5. OPSUMIT [Concomitant]
     Active Substance: MACITENTAN

REACTIONS (5)
  - Loss of consciousness [None]
  - Fall [None]
  - Headache [None]
  - Myalgia [None]
  - Decreased appetite [None]

NARRATIVE: CASE EVENT DATE: 20221022
